FAERS Safety Report 11150807 (Version 1)
Quarter: 2015Q2

REPORT INFORMATION
  Report Type: Spontaneous
  Country: US (occurrence: None)
  Receive Date: 20150528
  Receipt Date: 20150528
  Transmission Date: 20150821
  Serious: Yes (Death)
  Sender: FDA-Public Use
  Company Number: 2015RIS00068

PATIENT
  Age: 22 Day
  Sex: Female
  Weight: 1.6 kg

DRUGS (6)
  1. N-ACETYLCYSTEINE [Concomitant]
     Active Substance: ACETYLCYSTEINE
  2. FLUCONAZOLE. [Suspect]
     Active Substance: FLUCONAZOLE
     Route: 042
  3. UNSPECIFIED VASOPRESSORES [Concomitant]
  4. DEFEROXAMINE [Concomitant]
     Active Substance: DEFEROXAMINE\DEFEROXAMINE MESYLATE
  5. VITAMIN E [Concomitant]
     Active Substance: .ALPHA.-TOCOPHEROL
  6. OXACILLIN [Concomitant]
     Active Substance: OXACILLIN SODIUM

REACTIONS (6)
  - Cardiac arrest [None]
  - Acinetobacter test positive [None]
  - Multi-organ failure [None]
  - Toxic epidermal necrolysis [None]
  - Neonatal hypoxia [None]
  - Bradycardia [None]
